FAERS Safety Report 5270036-X (Version None)
Quarter: 2007Q1

REPORT INFORMATION
  Report Type: 
  Country: None (occurrence: None)
  Receive Date: 20061214
  Receipt Date: 20060711
  Transmission Date: 20070707
  Serious: Yes (Other)
  Sender: FDA-Public Use
  Company Number: 2006061484

PATIENT
  Age: 59 Year
  Sex: Male

DRUGS (7)
  1. BEXTRA [Suspect]
     Indication: BACK PAIN
     Dosage: 20 MG (20 MG, 1 IN 1 D), UNKNOWN
     Dates: start: 20020715
  2. BEXTRA [Suspect]
     Indication: INFLAMMATION
     Dosage: 20 MG (20 MG, 1 IN 1 D), UNKNOWN
     Dates: start: 20020715
  3. BEXTRA [Suspect]
     Indication: PAIN MANAGEMENT
     Dosage: 20 MG (20 MG, 1 IN 1 D), UNKNOWN
     Dates: start: 20020715
  4. CELEBREX [Concomitant]
  5. VIOXX [Concomitant]
  6. ACETYLSALICYLIC ACID SRT [Concomitant]
  7. ADVIL [Concomitant]

REACTIONS (1)
  - MYOCARDIAL INFARCTION [None]
